FAERS Safety Report 8271115-5 (Version None)
Quarter: 2012Q2

REPORT INFORMATION
  Report Type: 
  Country: None (occurrence: None)
  Receive Date: 20120410
  Receipt Date: 20120330
  Transmission Date: 20120825
  Serious: Yes (Other)
  Sender: FDA-Public Use
  Company Number: JP-PFIZER INC-2012080026

PATIENT
  Sex: Female

DRUGS (1)
  1. ZYVOX [Suspect]
     Dosage: UNK
     Dates: start: 20120327, end: 20120329

REACTIONS (2)
  - HYPOAESTHESIA [None]
  - LOSS OF CONSCIOUSNESS [None]
